FAERS Safety Report 24000245 (Version 1)
Quarter: 2024Q2

REPORT INFORMATION
  Report Type: Spontaneous
  Country: ZA (occurrence: None)
  Receive Date: 20240621
  Receipt Date: 20240621
  Transmission Date: 20240715
  Serious: Yes (Hospitalization)
  Sender: FDA-Public Use
  Company Number: 2024A139596

PATIENT
  Age: 84 Year
  Sex: Female

DRUGS (8)
  1. DAPAGLIFLOZIN PROPANEDIOL [Suspect]
     Active Substance: DAPAGLIFLOZIN PROPANEDIOL
     Indication: Diabetes mellitus
     Route: 048
  2. ECOTRIN [Concomitant]
     Active Substance: ASPIRIN
     Indication: Urinary bladder haemorrhage
  3. OPTISULIN PEN [Concomitant]
     Indication: Diabetes mellitus
  4. SPIRACTIN [Concomitant]
     Indication: Hypertension
  5. LIPOGEN [Concomitant]
     Indication: Blood cholesterol
  6. LANSOPRAZOLE [Concomitant]
     Active Substance: LANSOPRAZOLE
     Indication: Ulcer
  7. MYSOLINE [Concomitant]
     Active Substance: PRIMIDONE
     Indication: Epilepsy
  8. CLOPIDOGREL BISULFATE [Concomitant]
     Active Substance: CLOPIDOGREL BISULFATE

REACTIONS (1)
  - Illness [Unknown]
